FAERS Safety Report 21869863 (Version 1)
Quarter: 2023Q1

REPORT INFORMATION
  Report Type: Spontaneous
  Country: US (occurrence: US)
  Receive Date: 20230117
  Receipt Date: 20230117
  Transmission Date: 20230417
  Serious: No
  Sender: FDA-Public Use
  Company Number: US-BEH-2023154082

PATIENT
  Sex: Male

DRUGS (2)
  1. HIZENTRA [Suspect]
     Active Substance: HUMAN IMMUNOGLOBULIN G
     Indication: Chronic inflammatory demyelinating polyradiculoneuropathy
     Dosage: 24 GRAM, QW
     Route: 058
     Dates: start: 20220801
  2. HIZENTRA [Suspect]
     Active Substance: HUMAN IMMUNOGLOBULIN G
     Dosage: 3 GRAM, QW
     Route: 058
     Dates: start: 20220801

REACTIONS (3)
  - Fatigue [Unknown]
  - Balance disorder [Unknown]
  - Dizziness [Unknown]
